FAERS Safety Report 6906065-7 (Version None)
Quarter: 2010Q3

REPORT INFORMATION
  Report Type: 
  Country: None (occurrence: None)
  Receive Date: 20100802
  Receipt Date: 20100802
  Transmission Date: 20110219
  Serious: Yes (Hospitalization)
  Sender: FDA-Public Use
  Company Number: None

PATIENT
  Age: 8 Year
  Sex: Female

DRUGS (1)
  1. BACLOFEN [Suspect]
     Indication: MUSCLE SPASMS
     Dosage: IT
     Route: 037

REACTIONS (4)
  - EXTRAVASATION [None]
  - HYPOTENSION [None]
  - PNEUMONIA [None]
  - TACHYCARDIA [None]
